FAERS Safety Report 4872713-9 (Version None)
Quarter: 2006Q1

REPORT INFORMATION
  Report Type: 
  Country: None (occurrence: None)
  Receive Date: 20060103
  Receipt Date: 20051221
  Transmission Date: 20060701
  Serious: Yes (Hospitalization, Other)
  Sender: FDA-Public Use
  Company Number: US 0509122424

PATIENT
  Sex: Female

DRUGS (6)
  1. ZYPREXA [Suspect]
     Dosage: SEE IMAGE
  2. ZETIA [Concomitant]
  3. LOTREL [Concomitant]
  4. SEROQUEL [Concomitant]
  5. ZOCOR [Concomitant]
  6. LIPITOR [Concomitant]

REACTIONS (12)
  - AORTIC VALVE STENOSIS [None]
  - BLOOD CHOLESTEROL INCREASED [None]
  - CEREBROVASCULAR ACCIDENT [None]
  - DIABETES MELLITUS [None]
  - DIABETIC KETOACIDOSIS [None]
  - HEPATIC STEATOSIS [None]
  - HYPERTENSION [None]
  - HYPERTENSIVE CRISIS [None]
  - HYPERTRIGLYCERIDAEMIA [None]
  - MITRAL VALVE INCOMPETENCE [None]
  - TRANSIENT ISCHAEMIC ATTACK [None]
  - WEIGHT INCREASED [None]
